FAERS Safety Report 13565486 (Version 4)
Quarter: 2017Q3

REPORT INFORMATION
  Report Type: Report from Study
  Country: US (occurrence: US)
  Receive Date: 20170519
  Receipt Date: 20170706
  Transmission Date: 20171127
  Serious: Yes (Hospitalization)
  Sender: FDA-Public Use
  Company Number: US-ACTELION-A-US2017-150003

PATIENT
  Age: 74 Year
  Sex: Female
  Weight: 58.5 kg

DRUGS (8)
  1. SILDENAFIL. [Concomitant]
     Active Substance: SILDENAFIL
  2. VELETRI [Suspect]
     Active Substance: EPOPROSTENOL
     Dosage: 6.25 NG/KG, PER MIN
     Route: 042
  3. VELETRI [Suspect]
     Active Substance: EPOPROSTENOL
     Indication: PULMONARY ARTERIAL HYPERTENSION
     Dosage: 15.25 NG/KG, PER MIN
     Route: 042
  4. VELETRI [Suspect]
     Active Substance: EPOPROSTENOL
     Dosage: 5.5 NG/KG, PER MIN
     Route: 042
     Dates: start: 20170210
  5. VELETRI [Suspect]
     Active Substance: EPOPROSTENOL
     Dosage: 5 NG/KG, PER MIN
     Route: 042
  6. FUROSEMIDE. [Concomitant]
     Active Substance: FUROSEMIDE
  7. OXYGEN. [Concomitant]
     Active Substance: OXYGEN
  8. REMODULIN [Concomitant]
     Active Substance: TREPROSTINIL

REACTIONS (29)
  - Arthralgia [Unknown]
  - Pain in jaw [Unknown]
  - Fatigue [Unknown]
  - Urinary tract infection [Unknown]
  - Diarrhoea [Unknown]
  - Vomiting [Unknown]
  - Feeling abnormal [Unknown]
  - Swelling [Unknown]
  - Therapy non-responder [Unknown]
  - Breath sounds abnormal [Unknown]
  - Bone pain [Unknown]
  - Headache [Unknown]
  - Nausea [Unknown]
  - Hypersomnia [Unknown]
  - Weight increased [Unknown]
  - Oedema peripheral [Unknown]
  - Rash pruritic [Unknown]
  - Dyspnoea [Unknown]
  - Dizziness [Unknown]
  - Blood pressure measurement [Unknown]
  - Retching [Unknown]
  - Insomnia [Unknown]
  - Chest pain [Unknown]
  - Pain in extremity [Unknown]
  - Fluid retention [Unknown]
  - Syncope [Unknown]
  - Pain [Not Recovered/Not Resolved]
  - Infusion site discharge [Unknown]
  - Oedema [Unknown]
